FAERS Safety Report 12146425 (Version 1)
Quarter: 2016Q1

REPORT INFORMATION
  Report Type: Spontaneous
  Country: CN (occurrence: CN)
  Receive Date: 20160304
  Receipt Date: 20160304
  Transmission Date: 20160526
  Serious: Yes (Other)
  Sender: FDA-Public Use
  Company Number: CN-SEBELA IRELAND LIMITED-2016SEB00043

PATIENT
  Age: 59 Year
  Sex: Female

DRUGS (5)
  1. TELMISARTAN. [Concomitant]
     Active Substance: TELMISARTAN
  2. METFORMIN [Concomitant]
     Active Substance: METFORMIN HYDROCHLORIDE
  3. ACARBOSE. [Concomitant]
     Active Substance: ACARBOSE
  4. GLIPIZIDE. [Concomitant]
     Active Substance: GLIPIZIDE
  5. ALLOPURINOL. [Suspect]
     Active Substance: ALLOPURINOL
     Indication: HYPERURICAEMIA
     Dosage: 100 MG, 2X/DAY
     Route: 065

REACTIONS (3)
  - Liver disorder [Unknown]
  - Stevens-Johnson syndrome [Unknown]
  - Diabetes mellitus [Unknown]
